FAERS Safety Report 9102961 (Version 2)
Quarter: 2013Q1

REPORT INFORMATION
  Report Type: Spontaneous
  Country: JP (occurrence: None)
  Receive Date: 20130125
  Receipt Date: 20130314
  Transmission Date: 20140127
  Serious: No
  Sender: FDA-Public Use
  Company Number: SPI201300010

PATIENT
  Age: 23 Year
  Sex: Female

DRUGS (3)
  1. AMITIZA [Suspect]
     Indication: CONSTIPATION
     Route: 048
     Dates: start: 20121221, end: 20121222
  2. GANATON (ITOPRIDE HYDROCHLORIDE) [Concomitant]
  3. GASMOTIN (MOSAPRIDE CITRATE HYDRATE) [Concomitant]

REACTIONS (4)
  - Dyspnoea [None]
  - Tachypnoea [None]
  - Hypopnoea [None]
  - Feeling abnormal [None]
